FAERS Safety Report 10476339 (Version 3)
Quarter: 2015Q1

REPORT INFORMATION
  Report Type: Report from Study
  Country: BR (occurrence: BR)
  Receive Date: 20140925
  Receipt Date: 20150128
  Transmission Date: 20150720
  Serious: Yes (Hospitalization, Other)
  Sender: FDA-Public Use
  Company Number: BR-ABBVIE-14K-020-1287510-00

PATIENT
  Age: 61 Year
  Sex: Male
  Weight: 68 kg

DRUGS (15)
  1. PREDNISONE. [Concomitant]
     Active Substance: PREDNISONE
     Indication: SWELLING
     Route: 048
     Dates: start: 201403, end: 20140913
  2. TRAMADOL [Concomitant]
     Active Substance: TRAMADOL
     Indication: PAIN
     Route: 048
     Dates: start: 201404, end: 20140913
  3. TRAMADOL [Concomitant]
     Active Substance: TRAMADOL
     Dosage: DURING HOSPITALIZATION
     Route: 042
     Dates: start: 20140913
  4. CAPTOPRIL. [Concomitant]
     Active Substance: CAPTOPRIL
     Indication: HYPERTENSION
     Dosage: UNSPECIFIED DOSE
     Route: 048
  5. HUMIRA [Suspect]
     Active Substance: ADALIMUMAB
     Route: 058
     Dates: end: 20140913
  6. LACTULOSE. [Concomitant]
     Active Substance: LACTULOSE
     Indication: GASTROINTESTINAL PAIN
     Route: 048
     Dates: start: 201403
  7. HYDROCHLOROTHIAZIDE. [Concomitant]
     Active Substance: HYDROCHLOROTHIAZIDE
     Indication: HYPERTENSION
     Route: 048
  8. HUMIRA [Suspect]
     Active Substance: ADALIMUMAB
     Indication: CROHN^S DISEASE
     Dosage: UNSPECIFIED STARTING DOSE
     Route: 058
     Dates: start: 20140813
  9. AZATHIOPRINE. [Concomitant]
     Active Substance: AZATHIOPRINE
     Indication: CROHN^S DISEASE
  10. PARACETAMOL+CODEINE [Concomitant]
     Active Substance: ACETAMINOPHEN\CODEINE PHOSPHATE
     Indication: PAIN
     Dosage: 500MG/30MG
     Route: 048
     Dates: start: 201405, end: 20140913
  11. PREDNISONE. [Concomitant]
     Active Substance: PREDNISONE
     Indication: ANORECTAL SWELLING
     Dosage: DURING HOSPITALIZATION
     Route: 042
     Dates: start: 20140913
  12. DILTIAZEM [Concomitant]
     Active Substance: DILTIAZEM
     Indication: CROHN^S DISEASE
     Route: 061
  13. AZATHIOPRINE. [Concomitant]
     Active Substance: AZATHIOPRINE
     Indication: IMMUNODEFICIENCY
     Route: 048
     Dates: start: 201403
  14. INSULIN [Concomitant]
     Active Substance: INSULIN NOS
     Indication: DIABETES MELLITUS
     Dosage: 10 (UNSPECIFIED UNIT) IN THE MORNING AND 6 (UNSPECIFIED UNIT) IN THE AFTERNOON
     Route: 058
     Dates: start: 201407
  15. MESALAZINE [Concomitant]
     Active Substance: MESALAMINE
     Indication: CROHN^S DISEASE

REACTIONS (8)
  - Rectal fissure [Unknown]
  - Mental retardation [Unknown]
  - Meningitis bacterial [Not Recovered/Not Resolved]
  - Speech disorder [Recovering/Resolving]
  - Feeding disorder [Recovering/Resolving]
  - Gait disturbance [Recovering/Resolving]
  - Immunodeficiency [Unknown]
  - Proctalgia [Unknown]

NARRATIVE: CASE EVENT DATE: 20140911
